FAERS Safety Report 6651251-7 (Version None)
Quarter: 2010Q1

REPORT INFORMATION
  Report Type: 
  Country: None (occurrence: None)
  Receive Date: 20100325
  Receipt Date: 20100310
  Transmission Date: 20100710
  Serious: No
  Sender: FDA-Public Use
  Company Number: US-B.I. PHARMACEUTICALS,INC./RIDGEFIELD-2010-BP-03210BP

PATIENT

DRUGS (4)
  1. VIRAMUNE [Suspect]
  2. EPIVIR [Concomitant]
  3. TRUVADA [Concomitant]
  4. BACTRIM [Concomitant]

REACTIONS (3)
  - HYPERSENSITIVITY [None]
  - NASOPHARYNGITIS [None]
  - T-LYMPHOCYTE COUNT DECREASED [None]
